FAERS Safety Report 7576690-1 (Version None)
Quarter: 2011Q2

REPORT INFORMATION
  Report Type: 
  Country: None (occurrence: None)
  Receive Date: 20110628
  Receipt Date: 20110120
  Transmission Date: 20111010
  Serious: Yes (Other)
  Sender: FDA-Public Use
  Company Number: US-BAYER-201038091NA

PATIENT
  Sex: Female
  Weight: 96.145 kg

DRUGS (5)
  1. YAZ [Suspect]
     Indication: ACNE
     Dosage: UNK
     Dates: start: 20010101, end: 20060101
  2. DROSPIRENONE AND ETHINYL ESTRADIOL [Suspect]
     Indication: ACNE
  3. TYLENOL REGULAR [Concomitant]
  4. YASMIN [Suspect]
     Indication: ACNE
  5. BENADRYL [Concomitant]

REACTIONS (4)
  - PAIN [None]
  - GALLBLADDER DISORDER [None]
  - CHOLECYSTITIS [None]
  - CHOLECYSTITIS CHRONIC [None]
